FAERS Safety Report 17834151 (Version 2)
Quarter: 2020Q3

REPORT INFORMATION
  Report Type: Spontaneous
  Country: JP (occurrence: JP)
  Receive Date: 20200528
  Receipt Date: 20200720
  Transmission Date: 20201103
  Serious: Yes (Other)
  Sender: FDA-Public Use
  Company Number: JP-ORION CORPORATION ORION PHARMA-ENT 2020-0018

PATIENT
  Age: 81 Year
  Sex: Female

DRUGS (5)
  1. SYMMETREL [Concomitant]
     Active Substance: AMANTADINE HYDROCHLORIDE
     Route: 065
  2. COMTAN [Suspect]
     Active Substance: ENTACAPONE
     Indication: PARKINSON^S DISEASE
     Route: 048
     Dates: end: 20200508
  3. EC DOPARL [Concomitant]
     Active Substance: BENSERAZIDE HYDROCHLORIDE\LEVODOPA
     Route: 065
  4. DOPASTON [Concomitant]
     Active Substance: LEVODOPA
     Route: 065
  5. MIRAPEX [Concomitant]
     Active Substance: PRAMIPEXOLE DIHYDROCHLORIDE
     Route: 065

REACTIONS (5)
  - Organising pneumonia [Not Recovered/Not Resolved]
  - Trismus [Recovered/Resolved]
  - Therapeutic product effect incomplete [Unknown]
  - Parkinson^s disease [Recovering/Resolving]
  - Joint stiffness [Recovered/Resolved]

NARRATIVE: CASE EVENT DATE: 202003
